FAERS Safety Report 8471318-0 (Version None)
Quarter: 2012Q2

REPORT INFORMATION
  Report Type: 
  Country: None (occurrence: None)
  Receive Date: 20120627
  Receipt Date: 20120618
  Transmission Date: 20120825
  Serious: Yes (Other)
  Sender: FDA-Public Use
  Company Number: US-JNJFOC-20120609823

PATIENT
  Sex: Female
  Weight: 113.4 kg

DRUGS (5)
  1. DEXILANT [Concomitant]
     Indication: HYPERCHLORHYDRIA
     Route: 048
  2. WELLBUTRIN XL [Concomitant]
     Indication: FATIGUE
     Route: 048
  3. REMICADE [Suspect]
     Indication: CROHN'S DISEASE
     Route: 042
  4. PAXIL [Concomitant]
     Indication: FATIGUE
     Route: 048
  5. REMICADE [Suspect]
     Route: 042

REACTIONS (4)
  - MEMORY IMPAIRMENT [None]
  - FATIGUE [None]
  - FISTULA [None]
  - BLOOD GLUCOSE INCREASED [None]
